FAERS Safety Report 4438509-7 (Version None)
Quarter: 2004Q3

REPORT INFORMATION
  Report Type: 
  Country: None (occurrence: None)
  Receive Date: 20040831
  Receipt Date: 20040819
  Transmission Date: 20050211
  Serious: Yes (Life-Threatening, Disabling)
  Sender: FDA-Public Use
  Company Number: US-MERCK-0408USA01631

PATIENT
  Age: 68 Year
  Sex: Male

DRUGS (5)
  1. ZYRTEC [Concomitant]
     Indication: HYPERSENSITIVITY
     Route: 048
  2. COZAAR [Suspect]
     Indication: HYPERTENSION
     Route: 048
     Dates: start: 20040730, end: 20040731
  3. ZANTAC [Concomitant]
     Indication: GASTROOESOPHAGEAL REFLUX DISEASE
     Route: 065
  4. VIOXX [Concomitant]
     Indication: ARTHRITIS
     Route: 048
  5. HYTRIN [Concomitant]
     Indication: HYPERTENSION
     Route: 048

REACTIONS (4)
  - DYSPNOEA [None]
  - EYE SWELLING [None]
  - OROPHARYNGEAL SWELLING [None]
  - SWELLING FACE [None]
